FAERS Safety Report 17578018 (Version 2)
Quarter: 2020Q1

REPORT INFORMATION
  Report Type: Spontaneous
  Country: GB (occurrence: GB)
  Receive Date: 20200324
  Receipt Date: 20200327
  Transmission Date: 20200409
  Serious: Yes (Other)
  Sender: FDA-Public Use
  Company Number: GB-TEVA-2020-GB-1208873

PATIENT
  Age: 25 Year
  Sex: Male

DRUGS (2)
  1. TESTOSTERONE. [Suspect]
     Active Substance: TESTOSTERONE
     Indication: SUBSTANCE USE
     Route: 065
  2. TRIIODOTHYRONINE [Suspect]
     Active Substance: LIOTHYRONINE SODIUM
     Indication: SUBSTANCE USE
     Dosage: 25 MICROGRAM DAILY;
     Route: 065

REACTIONS (3)
  - Drug abuse [Recovered/Resolved]
  - Sinus tachycardia [Unknown]
  - Hyperthyroidism [Recovered/Resolved]
